FAERS Safety Report 13924049 (Version 1)
Quarter: 2017Q3

REPORT INFORMATION
  Report Type: Spontaneous
  Country: US (occurrence: None)
  Receive Date: 20170830
  Receipt Date: 20170830
  Transmission Date: 20171127
  Serious: No
  Sender: FDA-Public Use
  Company Number: None

PATIENT
  Age: 35 Year
  Sex: Male
  Weight: 184 kg

DRUGS (1)
  1. NALOXONE [Suspect]
     Active Substance: NALOXONE
     Indication: DRUG DEPENDENCE
     Dosage: 1 FILM, TID, SUBLINGUAL
     Route: 060

REACTIONS (2)
  - Abdominal pain upper [None]
  - Drug intolerance [None]

NARRATIVE: CASE EVENT DATE: 20170825
